FAERS Safety Report 9641546 (Version 2)
Quarter: 2013Q4

REPORT INFORMATION
  Report Type: Report from Study
  Country: DE (occurrence: DE)
  Receive Date: 20131023
  Receipt Date: 20131023
  Transmission Date: 20140711
  Serious: Yes (Hospitalization)
  Sender: FDA-Public Use
  Company Number: DE-B.I. PHARMACEUTICALS,INC./RIDGEFIELD-2012-EU-01483EU

PATIENT
  Age: 75 Year
  Sex: Female

DRUGS (2)
  1. BIBW 2992 [Suspect]
     Indication: NON-SMALL CELL LUNG CANCER
     Dosage: 30 MG
     Route: 048
     Dates: start: 20120210, end: 20120308
  2. PACLITAXEL [Suspect]
     Indication: NON-SMALL CELL LUNG CANCER

REACTIONS (3)
  - General physical health deterioration [Recovered/Resolved]
  - Diarrhoea [Recovered/Resolved]
  - Vomiting [Recovered/Resolved]
